FAERS Safety Report 8955362 (Version 3)
Quarter: 2013Q1

REPORT INFORMATION
  Report Type: Report from Study
  Country: CA (occurrence: CA)
  Receive Date: 20121207
  Receipt Date: 20130326
  Transmission Date: 20140127
  Serious: Yes (Life-Threatening, Hospitalization, Other)
  Sender: FDA-Public Use
  Company Number: CA-ROCHE-804319

PATIENT
  Age: 66 Year
  Sex: Male
  Weight: 90 kg

DRUGS (14)
  1. BLINDED TOCILIZUMAB [Suspect]
     Indication: RHEUMATOID ARTHRITIS
     Dosage: DATE OF MOST RECENT DOSE PRIOR TO SAE WAS ON 01/SEP/2011
     Route: 058
  2. BLINDED TOCILIZUMAB [Suspect]
     Indication: RHEUMATOID ARTHRITIS
     Dosage: MOST RECENT DOSE: 8 SEP 2011
     Route: 042
  3. TOCILIZUMAB [Suspect]
     Indication: RHEUMATOID ARTHRITIS
     Dosage: DATE OF MOST RECENT DOSE PRIOR TO SAE WAS ON 14/JUN/2012
     Route: 058
     Dates: start: 20111019
  4. OMEGA 3-6-9 [Concomitant]
     Route: 048
     Dates: start: 200804
  5. GLUCOSAMINE/CHONDROITIN [Concomitant]
     Route: 048
  6. ALEVE [Concomitant]
     Indication: RHEUMATOID ARTHRITIS
     Route: 048
     Dates: start: 20101001
  7. FOLIC ACID [Concomitant]
     Route: 048
     Dates: start: 20081007
  8. HYDROXYCHLOROQUINE [Concomitant]
     Indication: RHEUMATOID ARTHRITIS
     Route: 048
     Dates: start: 20110302, end: 20120619
  9. ASA [Concomitant]
     Route: 048
     Dates: start: 20111020
  10. PANTOPRAZOLE [Concomitant]
     Route: 048
     Dates: start: 20111025
  11. METHOTREXATE [Concomitant]
     Route: 048
     Dates: start: 20110908, end: 20120719
  12. METHOTREXATE [Concomitant]
     Route: 048
     Dates: start: 20110712, end: 20110907
  13. PREDNISONE [Concomitant]
     Route: 048
     Dates: start: 20110712, end: 20110927
  14. LEVETIRACETAM [Concomitant]
     Route: 048
     Dates: start: 20111006, end: 20120618

REACTIONS (2)
  - Grand mal convulsion [Recovered/Resolved]
  - Grand mal convulsion [Recovered/Resolved]
